FAERS Safety Report 7503608-X (Version None)
Quarter: 2011Q2

REPORT INFORMATION
  Report Type: 
  Country: None (occurrence: None)
  Receive Date: 20110525
  Receipt Date: 20110516
  Transmission Date: 20111010
  Serious: No
  Sender: FDA-Public Use
  Company Number: JP-ASTRAZENECA-2011SE22121

PATIENT
  Age: 32205 Day
  Sex: Female

DRUGS (2)
  1. GOODMIN [Suspect]
     Indication: INSOMNIA
     Route: 048
     Dates: end: 20110112
  2. SEROQUEL [Suspect]
     Indication: INSOMNIA
     Route: 048
     Dates: start: 20110107, end: 20110112

REACTIONS (3)
  - ERYTHEMA [None]
  - DRUG ERUPTION [None]
  - LYMPHOCYTE STIMULATION TEST POSITIVE [None]
